FAERS Safety Report 23889546 (Version 1)
Quarter: 2024Q2

REPORT INFORMATION
  Report Type: Spontaneous
  Country: US (occurrence: None)
  Receive Date: 20240523
  Receipt Date: 20240523
  Transmission Date: 20240716
  Serious: No
  Sender: FDA-Public Use
  Company Number: None

PATIENT
  Age: 53 Year
  Sex: Male

DRUGS (2)
  1. RIFAXIMIN [Suspect]
     Active Substance: RIFAXIMIN
  2. RIFAMPIN [Suspect]
     Active Substance: RIFAMPIN

REACTIONS (5)
  - Chromaturia [None]
  - Back pain [None]
  - Product prescribing error [None]
  - Product name confusion [None]
  - Product name confusion [None]
